FAERS Safety Report 15129023 (Version 1)
Quarter: 2018Q3

REPORT INFORMATION
  Report Type: Spontaneous
  Country: US (occurrence: US)
  Receive Date: 20180614
  Receipt Date: 20180614
  Transmission Date: 20181010
  Serious: Yes (Other)
  Sender: FDA-Public Use
  Company Number: None

PATIENT
  Age: 24 Year
  Sex: Female
  Weight: 66.6 kg

DRUGS (5)
  1. MIRENA [Suspect]
     Active Substance: LEVONORGESTREL
     Indication: CONTRACEPTION
     Dosage: ?          OTHER FREQUENCY:ONCE EVERY 8 YEARS;?
     Route: 015
     Dates: start: 20170510, end: 20171001
  2. VITAMIN D [Concomitant]
     Active Substance: CHOLECALCIFEROL
  3. LORATADINE. [Concomitant]
     Active Substance: LORATADINE
  4. FISH OIL [Concomitant]
     Active Substance: FISH OIL
  5. BIOTIN [Concomitant]
     Active Substance: BIOTIN

REACTIONS (15)
  - Alopecia [None]
  - Muscle spasms [None]
  - Pain in extremity [None]
  - Asthenia [None]
  - Weight decreased [None]
  - Arthralgia [None]
  - Mobility decreased [None]
  - Arthritis [None]
  - Dysstasia [None]
  - Hypotonia [None]
  - Anxiety [None]
  - Amenorrhoea [None]
  - Musculoskeletal pain [None]
  - Muscular weakness [None]
  - Depression [None]

NARRATIVE: CASE EVENT DATE: 20171001
